FAERS Safety Report 11685304 (Version 1)
Quarter: 2015Q4

REPORT INFORMATION
  Report Type: Spontaneous
  Country: US (occurrence: None)
  Receive Date: 20151029
  Receipt Date: 20151029
  Transmission Date: 20160304
  Serious: Yes (Other)
  Sender: FDA-Public Use
  Company Number: None

PATIENT
  Age: 57 Year
  Sex: Male
  Weight: 77.11 kg

DRUGS (1)
  1. TAMSULOSIN [Suspect]
     Active Substance: TAMSULOSIN
     Indication: PROSTATOMEGALY
     Dosage: 2 PILLS
     Route: 048

REACTIONS (7)
  - Dizziness [None]
  - Dysuria [None]
  - Visual impairment [None]
  - Hydrocephalus [None]
  - Ejaculation failure [None]
  - Balance disorder [None]
  - Polycythaemia [None]

NARRATIVE: CASE EVENT DATE: 20130415
